FAERS Safety Report 21782285 (Version 1)
Quarter: 2022Q4

REPORT INFORMATION
  Report Type: Spontaneous
  Country: US (occurrence: US)
  Receive Date: 20221227
  Receipt Date: 20221227
  Transmission Date: 20230112
  Serious: Yes (Other)
  Sender: FDA-Public Use
  Company Number: US-AMGEN-USASP2022220808

PATIENT
  Age: 17 Year
  Sex: Female

DRUGS (1)
  1. BLINCYTO [Suspect]
     Active Substance: BLINATUMOMAB
     Indication: B precursor type acute leukaemia
     Dosage: UNK
     Route: 065

REACTIONS (4)
  - B precursor type acute leukaemia [Recovered/Resolved]
  - Leukaemic infiltration extramedullary [Recovering/Resolving]
  - Cytokine release syndrome [Recovered/Resolved]
  - Lymphocyte count increased [Unknown]
